FAERS Safety Report 7234045-3 (Version None)
Quarter: 2011Q1

REPORT INFORMATION
  Report Type: 
  Country: None (occurrence: None)
  Receive Date: 20110113
  Receipt Date: 20110113
  Transmission Date: 20110831
  Serious: No
  Sender: FDA-Public Use
  Company Number: None

PATIENT
  Sex: Male
  Weight: 69.3 kg

DRUGS (4)
  1. MERCAPTOPURINE [Suspect]
     Dosage: 3900 MG
  2. DEXAMETHASONE [Suspect]
     Dosage: 120MG
  3. METHOTREXATE [Suspect]
     Dosage: 1425 MG
  4. VINCRISTINE SULFATE [Suspect]
     Dosage: 4 MG

REACTIONS (1)
  - PLATELET COUNT DECREASED [None]
